FAERS Safety Report 8205150-X (Version None)
Quarter: 2012Q1

REPORT INFORMATION
  Report Type: 
  Country: None (occurrence: None)
  Receive Date: 20120313
  Receipt Date: 20120307
  Transmission Date: 20120608
  Serious: Yes (Other)
  Sender: FDA-Public Use
  Company Number: JP-GLAXOSMITHKLINE-B0787119A

PATIENT
  Age: 9 Decade
  Sex: Female

DRUGS (2)
  1. RIZE [Concomitant]
     Route: 048
  2. PAXIL [Suspect]
     Indication: DEPRESSION
     Route: 048

REACTIONS (4)
  - DRUG DEPENDENCE [None]
  - DIZZINESS [None]
  - FRACTURE [None]
  - FALL [None]
